FAERS Safety Report 18312171 (Version 1)
Quarter: 2020Q3

REPORT INFORMATION
  Report Type: Spontaneous
  Country: SE (occurrence: SE)
  Receive Date: 20200925
  Receipt Date: 20200925
  Transmission Date: 20201103
  Serious: Yes (Life-Threatening)
  Sender: FDA-Public Use
  Company Number: SE-TEVA-2020-SE-1830198

PATIENT
  Age: 82 Year
  Sex: Male

DRUGS (1)
  1. STESOLID NOVUM [Suspect]
     Active Substance: DIAZEPAM
     Dates: start: 20200822

REACTIONS (1)
  - Respiratory arrest [Recovered/Resolved]

NARRATIVE: CASE EVENT DATE: 20200822
